FAERS Safety Report 9312665 (Version 1)
Quarter: 2013Q2

REPORT INFORMATION
  Report Type: Spontaneous
  Country: CA (occurrence: CA)
  Receive Date: 20130528
  Receipt Date: 20130528
  Transmission Date: 20140414
  Serious: Yes (Other)
  Sender: FDA-Public Use
  Company Number: CA-JNJFOC-20130512738

PATIENT
  Sex: 0

DRUGS (16)
  1. BENADRYL [Suspect]
     Indication: PRODUCT USED FOR UNKNOWN INDICATION
     Route: 065
  2. CYMBALTA [Suspect]
     Indication: PRODUCT USED FOR UNKNOWN INDICATION
     Route: 065
  3. CYMBALTA [Suspect]
     Indication: PRODUCT USED FOR UNKNOWN INDICATION
     Route: 065
  4. ADVAIR [Concomitant]
     Route: 065
  5. APO FUROSEMIDE [Concomitant]
     Route: 065
  6. APO-DILTIAZ CD [Concomitant]
     Route: 065
  7. APO-FERROUS GLUCONATE [Concomitant]
     Route: 065
  8. ASPIRIN [Concomitant]
     Route: 065
  9. NEXIUM [Concomitant]
     Route: 065
  10. NITRO-DUR [Concomitant]
     Route: 065
  11. ATORVASTATIN [Concomitant]
     Route: 065
  12. RAMIPRIL [Concomitant]
     Route: 065
  13. REACTINE [Concomitant]
     Route: 065
  14. SALBUTAMOL [Concomitant]
     Route: 065
  15. SERC [Concomitant]
     Route: 065
  16. SYNTHROID [Concomitant]
     Route: 065

REACTIONS (10)
  - Diarrhoea [Unknown]
  - Dyskinesia [Unknown]
  - Dysphagia [Unknown]
  - Hyperhidrosis [Unknown]
  - Insomnia [Unknown]
  - Malaise [Unknown]
  - Nausea [Unknown]
  - Pharyngeal erythema [Unknown]
  - Pharyngeal oedema [Unknown]
  - Rash [Unknown]
